FAERS Safety Report 24777457 (Version 1)
Quarter: 2024Q4

REPORT INFORMATION
  Report Type: Spontaneous
  Country: US (occurrence: None)
  Receive Date: 20241224
  Receipt Date: 20241224
  Transmission Date: 20250114
  Serious: Yes (unspecified)
  Sender: Public
  Company Number: None

PATIENT
  Age: 64 Year
  Sex: Male
  Weight: 112.5 kg

DRUGS (1)
  1. TESTOSTERONE CYPIONATE [Suspect]
     Active Substance: TESTOSTERONE CYPIONATE
     Indication: Secondary hypogonadism
     Dosage: .5 ML WEEKLY ?

REACTIONS (5)
  - Product quality issue [None]
  - Suspected product quality issue [None]
  - Drug ineffective [None]
  - Therapeutic product effect increased [None]
  - Red blood cell count increased [None]

NARRATIVE: CASE EVENT DATE: 20241211
